FAERS Safety Report 13663748 (Version 1)
Quarter: 2017Q2

REPORT INFORMATION
  Report Type: Spontaneous
  Country: US (occurrence: US)
  Receive Date: 20170616
  Receipt Date: 20170616
  Transmission Date: 20170830
  Serious: Yes (Hospitalization)
  Sender: FDA-Public Use
  Company Number: None

PATIENT
  Age: 56 Year
  Sex: Female

DRUGS (1)
  1. STELARA [Suspect]
     Active Substance: USTEKINUMAB
     Indication: PSORIASIS
     Dosage: EVERY 3 MONTHS
     Route: 058
     Dates: start: 20170228, end: 20170323

REACTIONS (2)
  - Staphylococcal infection [None]
  - Immunosuppression [None]

NARRATIVE: CASE EVENT DATE: 20170315
